FAERS Safety Report 18408489 (Version 1)
Quarter: 2020Q4

REPORT INFORMATION
  Report Type: Report from Study
  Country: IT (occurrence: IT)
  Receive Date: 20201021
  Receipt Date: 20201021
  Transmission Date: 20210114
  Serious: Yes (Other)
  Sender: FDA-Public Use
  Company Number: IT-TEVA-2020-IT-1839800

PATIENT
  Age: 56 Year
  Sex: Male

DRUGS (2)
  1. AMOXICILLIN. [Suspect]
     Active Substance: AMOXICILLIN
     Indication: TOOTHACHE
     Route: 048
     Dates: start: 20200902, end: 20200902
  2. BRUFEN [Suspect]
     Active Substance: IBUPROFEN
     Indication: TOOTHACHE
     Dates: start: 20200902, end: 20200902

REACTIONS (1)
  - Angioedema [Recovering/Resolving]

NARRATIVE: CASE EVENT DATE: 20200902
